FAERS Safety Report 4688595-4 (Version None)
Quarter: 2005Q2

REPORT INFORMATION
  Report Type: 
  Country: None (occurrence: None)
  Receive Date: 20050608
  Receipt Date: 20050318
  Transmission Date: 20051028
  Serious: No
  Sender: FDA-Public Use
  Company Number: 2005-BP-04625BP

PATIENT

DRUGS (1)
  1. SPIRIVA [Suspect]
     Dosage: 18 MCG (18 MCG, QD), IH
     Route: 055

REACTIONS (2)
  - FATIGUE [None]
  - MUSCULAR WEAKNESS [None]
